FAERS Safety Report 5662886-2 (Version None)
Quarter: 2008Q1

REPORT INFORMATION
  Report Type: 
  Country: None (occurrence: None)
  Receive Date: 20080311
  Receipt Date: 20080311
  Transmission Date: 20080703
  Serious: Yes (Other)
  Sender: FDA-Public Use
  Company Number: None

PATIENT
  Age: 58 Year
  Sex: Female
  Weight: 55.7924 kg

DRUGS (2)
  1. ACTONEL [Suspect]
     Indication: OSTEOPENIA
     Dosage: 35 MG-1 TABLET- WEEKLY PO
     Route: 048
     Dates: start: 20080227, end: 20080227
  2. ACTONEL [Suspect]
     Indication: SPINAL COLUMN STENOSIS
     Dosage: 35 MG-1 TABLET- WEEKLY PO
     Route: 048
     Dates: start: 20080227, end: 20080227

REACTIONS (3)
  - BONE PAIN [None]
  - CONDITION AGGRAVATED [None]
  - FIBROMYALGIA [None]
